FAERS Safety Report 8029494-X (Version None)
Quarter: 2012Q1

REPORT INFORMATION
  Report Type: 
  Country: None (occurrence: None)
  Receive Date: 20120109
  Receipt Date: 20111228
  Transmission Date: 20120608
  Serious: Yes (Other)
  Sender: FDA-Public Use
  Company Number: US-BIOGENIDEC-2009BI017997

PATIENT
  Age: 54 Year
  Sex: Female
  Weight: 83 kg

DRUGS (10)
  1. TYSABRI [Suspect]
     Indication: MULTIPLE SCLEROSIS
     Route: 042
     Dates: start: 20081001, end: 20110519
  2. SYNTHROID [Concomitant]
     Route: 048
  3. CYMBALTA [Concomitant]
     Route: 048
  4. RAZADYNE [Concomitant]
     Route: 048
  5. VESICARE [Concomitant]
     Route: 048
  6. NEURONTIN [Concomitant]
     Route: 048
  7. PRISTIQ [Concomitant]
     Route: 048
  8. ZOCOR [Concomitant]
     Route: 048
  9. CLONAZEPAM [Concomitant]
     Route: 048
  10. ASPIRIN [Concomitant]
     Route: 048

REACTIONS (2)
  - BREAST CANCER STAGE II [None]
  - EMPHYSEMA [None]
